FAERS Safety Report 15325136 (Version 1)
Quarter: 2018Q3

REPORT INFORMATION
  Report Type: Spontaneous
  Country: US (occurrence: US)
  Receive Date: 20180822
  Receipt Date: 20180822
  Transmission Date: 20181010
  Serious: Yes (Disabling)
  Sender: FDA-Public Use
  Company Number: None

PATIENT
  Age: 66 Year
  Sex: Male
  Weight: 67.72 kg

DRUGS (7)
  1. HARVONI [Suspect]
     Active Substance: LEDIPASVIR\SOFOSBUVIR
  2. LISINOPRIL 20MG TAB [Concomitant]
  3. INSULIN [Concomitant]
     Active Substance: INSULIN NOS
  4. HCTZ 25/LISINOPRIL 20MG TAB [Concomitant]
  5. ALPRAZOLAM 1MG TAB [Concomitant]
  6. BUPROPION HCL 75MG TAB [Concomitant]
  7. TEMAZEPAM 15MG CAP [Concomitant]

REACTIONS (1)
  - Tonsil cancer [None]
